FAERS Safety Report 9143149 (Version 1)
Quarter: 2013Q1

REPORT INFORMATION
  Report Type: Spontaneous
  Country: US (occurrence: US)
  Receive Date: 20130306
  Receipt Date: 20130306
  Transmission Date: 20140127
  Serious: No
  Sender: FDA-Public Use
  Company Number: US-ENDO PHARMACEUTICALS INC.-OPCR20120269

PATIENT
  Sex: Male

DRUGS (4)
  1. OPANA ER 20MG [Suspect]
     Indication: PAIN
     Dosage: UNKNOWN
     Route: 048
     Dates: start: 2012, end: 2012
  2. OPANA ER [Concomitant]
     Indication: PAIN
     Dosage: UNKNOWN
     Route: 048
     Dates: end: 2012
  3. ZOFRAN [Concomitant]
     Indication: NAUSEA
  4. OXYCODONE [Concomitant]
     Indication: BREAKTHROUGH PAIN

REACTIONS (4)
  - Non-cardiac chest pain [Unknown]
  - Nausea [Unknown]
  - Vomiting [Unknown]
  - Drug ineffective [Unknown]
